FAERS Safety Report 19783599 (Version 1)
Quarter: 2021Q3

REPORT INFORMATION
  Report Type: Spontaneous
  Country: None (occurrence: US)
  Receive Date: 20210902
  Receipt Date: 20210902
  Transmission Date: 20211014
  Serious: No
  Sender: FDA-Public Use
  Company Number: US-ARMSTRONG PHARMACEUTICALS, INC.-2117972

PATIENT
  Age: 68 Year
  Sex: Female
  Weight: 85.46 kg

DRUGS (2)
  1. PRIMATENE MIST [Suspect]
     Active Substance: EPINEPHRINE
     Indication: ASTHMA
     Route: 055
  2. TYLENOL [Concomitant]
     Active Substance: ACETAMINOPHEN

REACTIONS (1)
  - Burning sensation [Recovered/Resolved]
